FAERS Safety Report 11599215 (Version 1)
Quarter: 2015Q4

REPORT INFORMATION
  Report Type: Report from Study
  Country: DK (occurrence: DK)
  Receive Date: 20151006
  Receipt Date: 20151006
  Transmission Date: 20160304
  Serious: Yes (Death)
  Sender: FDA-Public Use
  Company Number: DK-ASTRAZENECA-2015SE95236

PATIENT
  Age: 36 Year
  Sex: Female
  Weight: 75 kg

DRUGS (9)
  1. CLONAZEPAM. [Suspect]
     Active Substance: CLONAZEPAM
     Route: 065
  2. ARIPIPRAZOLE. [Concomitant]
     Active Substance: ARIPIPRAZOLE
  3. BIPERIDEN [Concomitant]
     Active Substance: BIPERIDEN
  4. CODEINE [Concomitant]
     Active Substance: CODEINE
  5. SALICYLIC ACID. [Concomitant]
     Active Substance: SALICYLIC ACID
  6. TRAMADOL. [Suspect]
     Active Substance: TRAMADOL
     Route: 065
  7. QUETIAPINE FUMARATE. [Suspect]
     Active Substance: QUETIAPINE FUMARATE
     Route: 048
  8. CITALOPRAM [Suspect]
     Active Substance: CITALOPRAM HYDROBROMIDE
     Route: 065
  9. IBUPROFEN. [Concomitant]
     Active Substance: IBUPROFEN

REACTIONS (1)
  - Toxicity to various agents [Fatal]
